FAERS Safety Report 6993860-1 (Version None)
Quarter: 2010Q3

REPORT INFORMATION
  Report Type: 
  Country: None (occurrence: None)
  Receive Date: 20100917
  Receipt Date: 20071001
  Transmission Date: 20110219
  Serious: Yes (Other)
  Sender: FDA-Public Use
  Company Number: US-ASTRAZENECA-2007UW09453

PATIENT
  Age: 493 Month
  Sex: Male
  Weight: 119.7 kg

DRUGS (6)
  1. SEROQUEL [Suspect]
     Indication: DEPRESSION
     Route: 048
     Dates: start: 19980101
  2. SEROQUEL [Suspect]
     Route: 048
     Dates: start: 19980101
  3. SEROQUEL [Suspect]
     Route: 048
     Dates: start: 20020919
  4. TRANZADO [Concomitant]
  5. CLOZARIL [Concomitant]
  6. PERCOCET [Concomitant]
     Indication: PAIN
     Dosage: 7.5/500 MG 6-8 HRS
     Route: 048
     Dates: start: 19980714

REACTIONS (2)
  - DIABETES MELLITUS [None]
  - TYPE 2 DIABETES MELLITUS [None]
